FAERS Safety Report 7135539-1 (Version None)
Quarter: 2010Q4

REPORT INFORMATION
  Report Type: 
  Country: None (occurrence: None)
  Receive Date: 20101203
  Receipt Date: 20101122
  Transmission Date: 20110411
  Serious: Yes (Other)
  Sender: FDA-Public Use
  Company Number: US-ELI_LILLY_AND_COMPANY-US201009004664

PATIENT
  Age: 63 Year
  Sex: Female

DRUGS (3)
  1. ZYPREXA [Suspect]
     Indication: BIPOLAR DISORDER
     Dosage: 2.5 MG, OTHER
     Dates: start: 20070101
  2. ZYPREXA [Suspect]
     Dosage: 5 MG, OTHER
  3. METFORMIN [Concomitant]
     Dosage: 500 MG, UNK

REACTIONS (2)
  - BLOOD GLUCOSE FLUCTUATION [None]
  - BLOOD GLUCOSE INCREASED [None]
